FAERS Safety Report 5201623-2 (Version None)
Quarter: 2006Q4

REPORT INFORMATION
  Report Type: 
  Country: None (occurrence: None)
  Receive Date: 20061006
  Receipt Date: 20060628
  Transmission Date: 20070319
  Serious: Yes (Hospitalization)
  Sender: FDA-Public Use
  Company Number: 200612256BWH

PATIENT
  Age: 43 Year
  Sex: Male

DRUGS (3)
  1. CIPRO [Suspect]
     Indication: URETHRITIS
     Dosage: 500 MG, TOTAL DAILY, ORAL
     Route: 048
     Dates: start: 20060403
  2. AZITHROMYCIN [Suspect]
     Indication: URETHRITIS
     Dosage: 1000 MG, TOTAL DAILY, ORAL
     Route: 048
     Dates: start: 20060403
  3. ZANTAC [Concomitant]

REACTIONS (1)
  - PERSECUTORY DELUSION [None]
